FAERS Safety Report 10596306 (Version 1)
Quarter: 2014Q4

REPORT INFORMATION
  Report Type: Spontaneous
  Country: US (occurrence: US)
  Receive Date: 20141120
  Receipt Date: 20141120
  Transmission Date: 20150529
  Serious: No
  Sender: FDA-Public Use
  Company Number: US-009507513-1411USA008802

PATIENT
  Age: 4 Year
  Sex: Female
  Weight: 15.42 kg

DRUGS (4)
  1. AMOXICILLIN. [Concomitant]
     Active Substance: AMOXICILLIN
     Indication: PRODUCT USED FOR UNKNOWN INDICATION
     Dosage: UNK, UNKNOWN
  2. CLARITIN [Suspect]
     Active Substance: LORATADINE
     Dosage: UNK
  3. CLARITIN [Suspect]
     Active Substance: LORATADINE
     Indication: HYPERSENSITIVITY
     Dosage: UNK, QAM
     Route: 048
  4. CLARITIN [Suspect]
     Active Substance: LORATADINE
     Dosage: 10 MG, UNKNOWN
     Route: 048

REACTIONS (1)
  - Accidental overdose [Unknown]
